FAERS Safety Report 8866741 (Version 1)
Quarter: 2012Q4

REPORT INFORMATION
  Report Type: 
  Country: US (occurrence: US)
  Receive Date: 20121025
  Receipt Date: 20121025
  Transmission Date: 20130627
  Serious: No
  Sender: FDA-Public Use
  Company Number: US-AMGEN-USASP2012013171

PATIENT
  Age: 39 Year
  Sex: Female
  Weight: 108.84 kg

DRUGS (2)
  1. ENBREL [Suspect]
     Indication: PSORIASIS
     Dosage: 50 mg, 2 times/wk
     Dates: start: 20120102
  2. CLOBETASOL [Concomitant]

REACTIONS (2)
  - Injection site warmth [Unknown]
  - Injection site erythema [Unknown]
